FAERS Safety Report 12584927 (Version 3)
Quarter: 2017Q1

REPORT INFORMATION
  Report Type: Report from Study
  Country: US (occurrence: US)
  Receive Date: 20160722
  Receipt Date: 20170124
  Transmission Date: 20170428
  Serious: No
  Sender: FDA-Public Use
  Company Number: US-AMGEN-USASL2016072437

PATIENT
  Age: 53 Year
  Sex: Male

DRUGS (1)
  1. REPATHA [Suspect]
     Active Substance: EVOLOCUMAB
     Indication: HYPERCHOLESTEROLAEMIA
     Dosage: 140 MG, Q2WK
     Route: 065

REACTIONS (6)
  - Ear discomfort [Unknown]
  - Injection site discomfort [Unknown]
  - Inner ear disorder [Unknown]
  - Wrong technique in product usage process [Unknown]
  - Eustachian tube disorder [Unknown]
  - Plantar fasciitis [Unknown]
